FAERS Safety Report 9392404 (Version 1)
Quarter: 2013Q3

REPORT INFORMATION
  Report Type: Spontaneous
  Country: US (occurrence: None)
  Receive Date: 20130708
  Receipt Date: 20130708
  Transmission Date: 20140515
  Serious: Yes (Other)
  Sender: FDA-Public Use
  Company Number: None

PATIENT
  Sex: Female
  Weight: 72.3 kg

DRUGS (1)
  1. COPAXONE [Suspect]
     Dosage: 5 YEARS PRIOR TO 11/2007
     Route: 058

REACTIONS (5)
  - Chest pain [None]
  - Gastrooesophageal reflux disease [None]
  - Haemorrhage [None]
  - Haematoma [None]
  - Nerve injury [None]
